FAERS Safety Report 6872837-0 (Version None)
Quarter: 2010Q3

REPORT INFORMATION
  Report Type: 
  Country: None (occurrence: None)
  Receive Date: 20100723
  Receipt Date: 20081031
  Transmission Date: 20110219
  Serious: No
  Sender: FDA-Public Use
  Company Number: US-PFIZER INC-2008092156

PATIENT
  Sex: Female

DRUGS (5)
  1. CHANTIX [Suspect]
     Indication: SMOKING CESSATION THERAPY
     Dates: start: 20081001
  2. CELEXA [Concomitant]
  3. SEROQUEL [Concomitant]
  4. STRATTERA [Concomitant]
  5. DEPAKOTE [Concomitant]

REACTIONS (2)
  - EMOTIONAL DISORDER [None]
  - MOOD SWINGS [None]
